FAERS Safety Report 16697285 (Version 3)
Quarter: 2019Q3

REPORT INFORMATION
  Report Type: Spontaneous
  Country: JP (occurrence: JP)
  Receive Date: 20190813
  Receipt Date: 20190919
  Transmission Date: 20191004
  Serious: Yes (Death, Other)
  Sender: FDA-Public Use
  Company Number: JP-PFIZER INC-2019340563

PATIENT
  Age: 79 Year
  Sex: Male
  Weight: 47 kg

DRUGS (15)
  1. BAKTAR [Concomitant]
     Active Substance: SULFAMETHOXAZOLE\TRIMETHOPRIM
     Indication: PROPHYLAXIS
  2. FUNGUARD [Suspect]
     Active Substance: MICAFUNGIN SODIUM
     Indication: BRONCHOPULMONARY ASPERGILLOSIS
     Dosage: 150 MG, 1X/DAY
     Route: 042
     Dates: start: 20190712, end: 20190718
  3. AMITIZA [Concomitant]
     Active Substance: LUBIPROSTONE
     Dosage: 1 DF, 2X/DAY
     Route: 048
     Dates: start: 20190720
  4. OLMESARTAN [Concomitant]
     Active Substance: OLMESARTAN
     Dosage: FROM 10 MG TO 20 MG , 1X/DAY
     Route: 048
     Dates: start: 20180630
  5. ALOSENN [Concomitant]
     Indication: CONSTIPATION
     Dosage: UNK, AS NEEDED
     Route: 048
  6. ITRIZOLE [Suspect]
     Active Substance: ITRACONAZOLE
     Indication: BRONCHOPULMONARY ASPERGILLOSIS
     Dosage: 200 MG, 1X/DAY
     Route: 048
     Dates: start: 20190719, end: 20190727
  7. LANSOPRAZOLE. [Concomitant]
     Active Substance: LANSOPRAZOLE
     Indication: PROPHYLAXIS AGAINST GASTROINTESTINAL ULCER
     Dosage: 15 MG, 1X/DAY
     Route: 048
     Dates: start: 20181220
  8. BAKTAR [Concomitant]
     Active Substance: SULFAMETHOXAZOLE\TRIMETHOPRIM
     Indication: PNEUMOCYSTIS JIROVECII PNEUMONIA
     Dosage: 1 DF, 1X/DAY
     Route: 048
     Dates: start: 20181220
  9. METFORMIN [Concomitant]
     Active Substance: METFORMIN HYDROCHLORIDE
     Indication: PROPHYLAXIS
  10. BISONO [Concomitant]
     Active Substance: BISOPROLOL
     Dosage: UNK
  11. NATRIX [Concomitant]
     Active Substance: INDAPAMIDE
     Dosage: 1 MG, 1X/DAY
     Route: 048
     Dates: start: 20190320
  12. VFEND [Suspect]
     Active Substance: VORICONAZOLE
     Indication: BRONCHOPULMONARY ASPERGILLOSIS
     Dosage: 300 MG, 1X/DAY
     Route: 048
     Dates: start: 20190730, end: 20190730
  13. FUNGUARD [Suspect]
     Active Substance: MICAFUNGIN SODIUM
     Dosage: 150 MG, 1X/DAY
     Route: 042
     Dates: start: 20190728, end: 20190729
  14. PREDONINE [Concomitant]
     Active Substance: PREDNISOLONE
     Indication: IMMUNOGLOBULIN G4 RELATED DISEASE
     Dosage: FROM 25MG TO 18 MG, 1X/DAY
     Route: 048
     Dates: start: 20181220
  15. METFORMIN [Concomitant]
     Active Substance: METFORMIN HYDROCHLORIDE
     Indication: STEROID DIABETES
     Dosage: 250 MG, 3X/DAY
     Route: 048
     Dates: start: 20190613

REACTIONS (4)
  - Hepatic function abnormal [Not Recovered/Not Resolved]
  - Hepatic congestion [Unknown]
  - Off label use [Unknown]
  - Pulmonary oedema [Fatal]

NARRATIVE: CASE EVENT DATE: 20190730
